FAERS Safety Report 6251371-5 (Version None)
Quarter: 2009Q2

REPORT INFORMATION
  Report Type: 
  Country: None (occurrence: None)
  Receive Date: 20090630
  Receipt Date: 20090623
  Transmission Date: 20091009
  Serious: Yes (Other)
  Sender: FDA-Public Use
  Company Number: B0577994A

PATIENT
  Age: 47 Year
  Sex: Female
  Weight: 65 kg

DRUGS (5)
  1. CLENIL MODULITE [Suspect]
     Indication: ASTHMA PROPHYLAXIS
     Dosage: 800MCG PER DAY
     Route: 055
     Dates: start: 20080804, end: 20080804
  2. AMOXICILLIN [Concomitant]
     Indication: INFECTION
     Dosage: 2250MG PER DAY
     Route: 048
     Dates: start: 20080730
  3. ESTRADIOL [Concomitant]
     Route: 065
     Dates: start: 20080301
  4. ALBUTEROL [Concomitant]
     Indication: ASTHMA
     Route: 065
  5. NORETHISTERONE [Concomitant]
     Route: 065
     Dates: start: 20080301

REACTIONS (1)
  - BURNING SENSATION [None]
